FAERS Safety Report 10559591 (Version 1)
Quarter: 2014Q4

REPORT INFORMATION
  Report Type: Spontaneous
  Country: FR (occurrence: FR)
  Receive Date: 20141103
  Receipt Date: 20141103
  Transmission Date: 20150529
  Serious: Yes (Hospitalization)
  Sender: FDA-Public Use
  Company Number: FR-BAYER-2014-157357

PATIENT
  Age: 17 Year
  Sex: Female

DRUGS (18)
  1. RIAMET [Concomitant]
     Active Substance: ARTEMETHER\LUMEFANTRINE
     Indication: PLASMODIUM FALCIPARUM INFECTION
     Dosage: 80 AND 480 MG TWICE
  2. RIAMET [Concomitant]
     Active Substance: ARTEMETHER\LUMEFANTRINE
     Indication: PLASMODIUM FALCIPARUM INFECTION
     Dosage: 80 AND 480 MG TWICE
  3. PIPERACILLIN AND TAZOBACTAM [Concomitant]
     Active Substance: PIPERACILLIN SODIUM\TAZOBACTAM SODIUM
     Indication: ANTIBIOTIC THERAPY
     Dosage: 12 G, DAILY
  4. NORMAL SALINE [Concomitant]
     Active Substance: SODIUM CHLORIDE
  5. GENTAMYCIN [Concomitant]
     Active Substance: GENTAMICIN
     Indication: SEPTIC SHOCK
  6. RIAMET [Concomitant]
     Active Substance: ARTEMETHER\LUMEFANTRINE
     Indication: PLASMODIUM FALCIPARUM INFECTION
     Dosage: 80 AND 480 MG TWICE
  7. RIAMET [Concomitant]
     Active Substance: ARTEMETHER\LUMEFANTRINE
     Indication: PLASMODIUM FALCIPARUM INFECTION
     Dosage: 80 AND 480 MG TWICE
  8. CIPROFLOXACIN. [Suspect]
     Active Substance: CIPROFLOXACIN
     Indication: ANTIBIOTIC THERAPY
     Dosage: 500 MG, BID
  9. RIAMET [Concomitant]
     Active Substance: ARTEMETHER\LUMEFANTRINE
     Indication: PLASMODIUM FALCIPARUM INFECTION
     Dosage: 80 AND 480 MG TWICE
  10. GENTAMYCIN [Concomitant]
     Active Substance: GENTAMICIN
     Indication: EVIDENCE BASED TREATMENT
     Dosage: 3 MG/KG/DAY
  11. ARTESUNATE [Suspect]
     Active Substance: ARTESUNATE
     Indication: PLASMODIUM FALCIPARUM INFECTION
     Dosage: 360 MG, [THREE DOSES OF 120 MG (2.4 MG/KG BODY WEIGHT) WITH 12 HOUR INTERVAL]
     Route: 042
  12. RIAMET [Concomitant]
     Active Substance: ARTEMETHER\LUMEFANTRINE
     Indication: PLASMODIUM FALCIPARUM INFECTION
     Dosage: 80 AND 480 MG TWICE
  13. METRONIDAZOLE. [Concomitant]
     Active Substance: METRONIDAZOLE
     Indication: EVIDENCE BASED TREATMENT
     Dosage: 1.5 G/DAY
  14. CEFTRIAXONE. [Concomitant]
     Active Substance: CEFTRIAXONE
     Indication: EVIDENCE BASED TREATMENT
     Dosage: 2 G/DAY
  15. CEFTRIAXONE. [Concomitant]
     Active Substance: CEFTRIAXONE
     Indication: SEPTIC SHOCK
  16. RIAMET [Concomitant]
     Active Substance: ARTEMETHER\LUMEFANTRINE
     Indication: PLASMODIUM FALCIPARUM INFECTION
     Dosage: 80 AND 480 MG THRICE
     Route: 048
  17. NOREPINEPHRINE [Concomitant]
     Active Substance: NOREPINEPHRINE\NOREPINEPHRINE BITARTRATE
     Indication: HYPOTENSION
     Dosage: UPTO 0.5 MCG/KG/MIN
  18. METRONIDAZOLE. [Concomitant]
     Active Substance: METRONIDAZOLE
     Indication: SEPTIC SHOCK

REACTIONS (1)
  - Autoimmune haemolytic anaemia [Recovered/Resolved]
